FAERS Safety Report 9888032 (Version 2)
Quarter: 2014Q2

REPORT INFORMATION
  Report Type: Spontaneous
  Country: TR (occurrence: TR)
  Receive Date: 20140211
  Receipt Date: 20140417
  Transmission Date: 20141212
  Serious: Yes (Death)
  Sender: FDA-Public Use
  Company Number: TR-PFIZER INC-2014035832

PATIENT
  Age: 41 Year
  Sex: Female

DRUGS (2)
  1. VANCOMYCIN [Suspect]
     Indication: MENINGITIS BACTERIAL
     Dosage: 2 G, DAILY
  2. CEFTRIAXONE [Suspect]
     Indication: MENINGITIS BACTERIAL
     Dosage: 4 G, DAILY

REACTIONS (1)
  - Drug ineffective [Fatal]
